FAERS Safety Report 12375406 (Version 1)
Quarter: 2016Q2

REPORT INFORMATION
  Report Type: Report from Study
  Country: FR (occurrence: FR)
  Receive Date: 20160517
  Receipt Date: 20160517
  Transmission Date: 20160815
  Serious: Yes (Hospitalization, Other)
  Sender: FDA-Public Use
  Company Number: FR-VIIV HEALTHCARE LIMITED-FR2016069222

PATIENT
  Sex: Male
  Weight: 55 kg

DRUGS (8)
  1. TENOFOVIR DISOPROXIL FUMARATE. [Suspect]
     Active Substance: TENOFOVIR DISOPROXIL FUMARATE
     Indication: HEPATITIS B
     Dosage: 62.5 MG, TWICE A WEEK
     Route: 065
     Dates: start: 200201
  2. 3TC [Suspect]
     Active Substance: LAMIVUDINE
     Indication: PRODUCT USED FOR UNKNOWN INDICATION
     Dosage: UNK
     Route: 065
  3. EMTRICITABINE [Suspect]
     Active Substance: EMTRICITABINE
     Indication: PRODUCT USED FOR UNKNOWN INDICATION
     Dosage: UNK
     Route: 065
  4. ENTECAVIR. [Suspect]
     Active Substance: ENTECAVIR
     Indication: PRODUCT USED FOR UNKNOWN INDICATION
     Route: 065
  5. PREZISTA [Concomitant]
     Active Substance: DARUNAVIR ETHANOLATE
     Indication: HIV INFECTION
     Dosage: UNK
  6. INTELENCE [Concomitant]
     Active Substance: ETRAVIRINE
     Indication: HIV INFECTION
     Dosage: UNK
  7. ISENTRESS [Concomitant]
     Active Substance: RALTEGRAVIR POTASSIUM
     Indication: HIV INFECTION
  8. NORVIR [Concomitant]
     Active Substance: RITONAVIR
     Indication: HIV INFECTION
     Dosage: UNK

REACTIONS (8)
  - Nephroangiosclerosis [Unknown]
  - Diarrhoea [Unknown]
  - Dehydration [Unknown]
  - Drug resistance [Unknown]
  - Renal failure [Unknown]
  - Acute kidney injury [Unknown]
  - Off label use [Unknown]
  - Hepatitis B [Unknown]

NARRATIVE: CASE EVENT DATE: 2006
